FAERS Safety Report 20131900 (Version 2)
Quarter: 2021Q4

REPORT INFORMATION
  Report Type: Spontaneous
  Country: US (occurrence: US)
  Receive Date: 20211130
  Receipt Date: 20211215
  Transmission Date: 20220304
  Serious: No
  Sender: FDA-Public Use
  Company Number: US-BIOMARINAP-US-2021-139740

PATIENT
  Age: 46 Year
  Sex: Female

DRUGS (1)
  1. ALDURAZYME [Suspect]
     Active Substance: LARONIDASE
     Indication: Mucopolysaccharidosis I
     Dosage: 23.2 MILLIGRAM, QW
     Route: 042
     Dates: start: 20200529

REACTIONS (3)
  - Cardiac disorder [Unknown]
  - Blood pressure abnormal [Unknown]
  - Osteoporosis [Unknown]

NARRATIVE: CASE EVENT DATE: 20200529
